FAERS Safety Report 7751335-6 (Version None)
Quarter: 2011Q3

REPORT INFORMATION
  Report Type: 
  Country: None (occurrence: None)
  Receive Date: 20110914
  Receipt Date: 20090709
  Transmission Date: 20111222
  Serious: Yes (Other)
  Sender: FDA-Public Use
  Company Number: PHHY2009TW68699

PATIENT

DRUGS (2)
  1. GLEEVEC [Suspect]
     Dosage: 4 DF, QD
     Route: 048
  2. GLEEVEC [Suspect]
     Dosage: 3 DF, QD
     Route: 048

REACTIONS (1)
  - GASTROINTESTINAL STROMAL TUMOUR [None]
